FAERS Safety Report 9841374 (Version 1)
Quarter: 2013Q4

REPORT INFORMATION
  Report Type: Spontaneous
  Country: US (occurrence: None)
  Receive Date: 20131219
  Receipt Date: 20131219
  Transmission Date: 20140711
  Serious: Yes (Death)
  Sender: FDA-Public Use
  Company Number: 163-20785-12103164

PATIENT
  Age: 59 Year
  Sex: Male

DRUGS (6)
  1. THALOMID [Suspect]
     Indication: PLASMA CELL MYELOMA
     Dosage: 200 MG, 28 IN 28 D, PO
     Route: 048
     Dates: start: 201207, end: 20120928
  2. THALOMID [Suspect]
     Indication: PLASMA CELL LEUKAEMIA
     Dosage: 200 MG, 28 IN 28 D, PO
     Route: 048
     Dates: start: 201207, end: 20120928
  3. FENTANYL (FENTANYL) (POULTICE OR PATCH) [Concomitant]
  4. FINASTERIDE (FINASTERIDE) (UNKNOWN) [Concomitant]
  5. ALFUZOSIN (ALFUZOSIN) (UNKNOWN) [Concomitant]
  6. FUROSEMIDE (FUROSEMIDE) (UNKNOWN) [Concomitant]

REACTIONS (1)
  - Plasma cell leukaemia [None]
